FAERS Safety Report 6600903-3 (Version None)
Quarter: 2010Q1

REPORT INFORMATION
  Report Type: 
  Country: None (occurrence: None)
  Receive Date: 20100223
  Receipt Date: 20100223
  Transmission Date: 20100710
  Serious: No
  Sender: FDA-Public Use
  Company Number: None

PATIENT
  Age: 56 Year
  Sex: Female
  Weight: 64.8644 kg

DRUGS (2)
  1. CARBAMAZEPIN 100MG [Suspect]
     Dosage: 1 MORNING 2 NIGHT EVERY DAY
     Dates: start: 20090501
  2. GEODON [Suspect]
     Dosage: 1 MEAL TIME WHEN NEED SLEEP
     Dates: start: 20090701

REACTIONS (1)
  - VISION BLURRED [None]
